FAERS Safety Report 8552633-9 (Version None)
Quarter: 2012Q3

REPORT INFORMATION
  Report Type: 
  Country: None (occurrence: None)
  Receive Date: 20120724
  Receipt Date: 20120724
  Transmission Date: 20120928
  Serious: Yes (Life-Threatening, Hospitalization)
  Sender: FDA-Public Use
  Company Number: None

PATIENT
  Sex: Female
  Weight: 100 kg

DRUGS (8)
  1. TIKOSYN [Suspect]
     Indication: ATRIAL FIBRILLATION
     Dosage: 0.5 MG Q12 ORAL 047
     Route: 048
     Dates: start: 20120709, end: 20120711
  2. FUROSEMIDE (LASIX) 20 MG. QD [Concomitant]
  3. DILTIAZEM HCL  (CARDIZEM   ) [Concomitant]
  4. SYNTHROID [Concomitant]
  5. LIPITOR [Concomitant]
  6. KLOR-CON [Concomitant]
  7. PRADAXA [Concomitant]
  8. MULTI-VITAMIN [Concomitant]

REACTIONS (4)
  - SOMNOLENCE [None]
  - MEMORY IMPAIRMENT [None]
  - TORSADE DE POINTES [None]
  - BURNING SENSATION [None]
